FAERS Safety Report 21816446 (Version 1)
Quarter: 2023Q1

REPORT INFORMATION
  Report Type: Spontaneous
  Country: FR (occurrence: FR)
  Receive Date: 20230104
  Receipt Date: 20230104
  Transmission Date: 20230417
  Serious: Yes (Hospitalization)
  Sender: FDA-Public Use
  Company Number: None

PATIENT
  Age: 62 Year
  Sex: Female

DRUGS (1)
  1. BETAMETHASONE [Suspect]
     Active Substance: BETAMETHASONE
     Indication: Ankylosing spondylitis
     Dosage: 1 TO 2 MG PER DAY
     Route: 048
     Dates: start: 2017, end: 20210110

REACTIONS (2)
  - Cushing^s syndrome [Recovering/Resolving]
  - Adrenocorticotropic hormone deficiency [Recovered/Resolved]

NARRATIVE: CASE EVENT DATE: 20210110
